FAERS Safety Report 8614416-0 (Version None)
Quarter: 2012Q3

REPORT INFORMATION
  Report Type: 
  Country: None (occurrence: None)
  Receive Date: 20120823
  Receipt Date: 20120817
  Transmission Date: 20120928
  Serious: Yes (Other)
  Sender: FDA-Public Use
  Company Number: DE-PFIZER INC-2012203354

PATIENT
  Age: 44 Year
  Sex: Male

DRUGS (3)
  1. IBUPROFEN [Suspect]
     Dosage: UNK
  2. SINUPRET [Suspect]
     Indication: VIRAL INFECTION
     Dosage: UNK
  3. PELARGONIUM SIDOIDES [Suspect]
     Indication: VIRAL INFECTION
     Dosage: UNK
     Dates: start: 20080201

REACTIONS (2)
  - HEPATOTOXICITY [None]
  - ALCOHOLIC LIVER DISEASE [None]
